FAERS Safety Report 6700423-1 (Version None)
Quarter: 2010Q2

REPORT INFORMATION
  Report Type: 
  Country: None (occurrence: None)
  Receive Date: 20100428
  Receipt Date: 20100319
  Transmission Date: 20101027
  Serious: Yes (Other)
  Sender: FDA-Public Use
  Company Number: US-ROCHE-699503

PATIENT

DRUGS (1)
  1. AVASTIN [Suspect]
     Indication: OVARIAN CANCER
     Dosage: DOSAGE: NOT PROVIDED
     Route: 065

REACTIONS (2)
  - CONVULSION [None]
  - HYPERTENSIVE ENCEPHALOPATHY [None]
